FAERS Safety Report 7423928-7 (Version None)
Quarter: 2011Q2

REPORT INFORMATION
  Report Type: 
  Country: None (occurrence: None)
  Receive Date: 20110419
  Receipt Date: 20110412
  Transmission Date: 20111010
  Serious: Yes (Hospitalization)
  Sender: FDA-Public Use
  Company Number: A0903033A

PATIENT
  Sex: Female

DRUGS (9)
  1. IMDUR [Concomitant]
  2. ASPIRIN [Concomitant]
  3. MICRONASE [Concomitant]
  4. CARDIZEM [Concomitant]
  5. PRILOSEC [Concomitant]
  6. AVANDIA [Suspect]
     Indication: DIABETES MELLITUS
     Dosage: 4MG PER DAY
     Route: 048
     Dates: start: 19990601, end: 19990801
  7. GLUCOPHAGE [Concomitant]
  8. LIPITOR [Concomitant]
  9. TENORMIN [Concomitant]

REACTIONS (1)
  - ANGINA UNSTABLE [None]
